FAERS Safety Report 11109489 (Version 1)
Quarter: 2015Q2

REPORT INFORMATION
  Report Type: Report from Study
  Country: SK (occurrence: None)
  Receive Date: 20150511
  Receipt Date: 20150511
  Transmission Date: 20150821
  Serious: Yes (Hospitalization)
  Sender: FDA-Public Use
  Company Number: 2015FE00409F

PATIENT
  Age: 75 Year
  Sex: Male
  Weight: 75 kg

DRUGS (8)
  1. DEGARELIX (DEGARELIX) POWDER AND SOLVENT FOR SOLUTION FOR INJECTION [Suspect]
     Active Substance: DEGARELIX
     Indication: PROSTATE CANCER
     Dosage: 80 MG, UNK, SUBCUTANEOUS
     Route: 058
     Dates: start: 20120515
  2. ZOMETA [Concomitant]
     Active Substance: ZOLEDRONIC ACID
  3. FRAXIPARINE (NADROPARIN) [Concomitant]
  4. CALTRATE PLUS (CALCIUM, COLECALCIFEROL, COPPER, MAGNESIUM, MANGANESE, ZINC) [Concomitant]
  5. TANYZ (TAMSULOSIN HYDROCHLORIDE) [Concomitant]
  6. ESTRACYT (ESTRAMUSTINE PHOSPHATE SODIUM) [Concomitant]
  7. PREDNISON (PREDNISONE) [Concomitant]
  8. WARFARIN [Concomitant]
     Active Substance: WARFARIN

REACTIONS (3)
  - Thrombophlebitis [None]
  - Malignant neoplasm progression [None]
  - Prostate cancer [None]

NARRATIVE: CASE EVENT DATE: 20140919
